FAERS Safety Report 9217187 (Version 3)
Quarter: 2013Q2

REPORT INFORMATION
  Report Type: Report from Study
  Country: RU (occurrence: RU)
  Receive Date: 20130408
  Receipt Date: 20130412
  Transmission Date: 20140414
  Serious: Yes (Hospitalization, Other)
  Sender: FDA-Public Use
  Company Number: RU-ROCHE-1210014

PATIENT
  Sex: Male

DRUGS (4)
  1. PEGASYS [Suspect]
     Indication: HEPATITIS C
     Route: 065
     Dates: start: 20121102
  2. PEGASYS [Suspect]
     Indication: HEPATITIS C
  3. RIBAVIRIN [Suspect]
     Indication: HEPATITIS C
     Route: 065
     Dates: start: 20121102
  4. RIBAVIRIN [Suspect]
     Indication: HEPATITIS C

REACTIONS (16)
  - Thrombocytopenia [Not Recovered/Not Resolved]
  - Red blood cell sedimentation rate increased [Not Recovered/Not Resolved]
  - Alanine aminotransferase increased [Recovering/Resolving]
  - Aspartate aminotransferase increased [Recovering/Resolving]
  - Splenomegaly [Not Recovered/Not Resolved]
  - Gamma-glutamyltransferase increased [Not Recovered/Not Resolved]
  - Alpha 2 globulin decreased [Not Recovered/Not Resolved]
  - Prothrombin level increased [Not Recovered/Not Resolved]
  - Palmar erythema [Not Recovered/Not Resolved]
  - Telangiectasia [Not Recovered/Not Resolved]
  - Epistaxis [Recovered/Resolved]
  - Flatulence [Recovering/Resolving]
  - Diarrhoea [Not Recovered/Not Resolved]
  - Liver disorder [Not Recovered/Not Resolved]
  - Depression [Unknown]
  - Pyrexia [Not Recovered/Not Resolved]
